FAERS Safety Report 14072442 (Version 1)
Quarter: 2017Q4

REPORT INFORMATION
  Report Type: Spontaneous
  Country: US (occurrence: US)
  Receive Date: 20171011
  Receipt Date: 20171011
  Transmission Date: 20180321
  Serious: No
  Sender: FDA-Public Use
  Company Number: US-TEVA-813110USA

PATIENT
  Sex: Female

DRUGS (2)
  1. OTFC [Suspect]
     Active Substance: FENTANYL CITRATE
     Indication: PRODUCT USED FOR UNKNOWN INDICATION
     Route: 065
  2. OTFC [Suspect]
     Active Substance: FENTANYL CITRATE
     Route: 065

REACTIONS (2)
  - Pain [Unknown]
  - Withdrawal syndrome [Unknown]
